FAERS Safety Report 16731447 (Version 1)
Quarter: 2019Q3

REPORT INFORMATION
  Report Type: Spontaneous
  Country: FR (occurrence: FR)
  Receive Date: 20190822
  Receipt Date: 20190822
  Transmission Date: 20191005
  Serious: Yes (Other)
  Sender: FDA-Public Use
  Company Number: FR-OTSUKA-2019_030006

PATIENT
  Age: 51 Year

DRUGS (12)
  1. THIOTEPA. [Suspect]
     Active Substance: THIOTEPA
     Indication: PRIMARY MYELOFIBROSIS
     Dosage: UNK
     Route: 065
  2. BUSULFAN. [Suspect]
     Active Substance: BUSULFAN
     Indication: ALLOGENIC STEM CELL TRANSPLANTATION
  3. BUSULFAN. [Suspect]
     Active Substance: BUSULFAN
     Indication: PRIMARY MYELOFIBROSIS
     Dosage: UNK
     Route: 065
  4. ANTITHYMOCYTE IMMUNOGLOBULIN [Suspect]
     Active Substance: THYMOCYTE IMMUNE GLOBULIN NOS
     Indication: PRIMARY MYELOFIBROSIS
     Dosage: UNK
     Route: 065
  5. FLUDARABINE [Suspect]
     Active Substance: FLUDARABINE PHOSPHATE
     Indication: PRIMARY MYELOFIBROSIS
     Dosage: UNK
     Route: 065
  6. FLUDARABINE [Suspect]
     Active Substance: FLUDARABINE PHOSPHATE
     Indication: CHRONIC MYELOID LEUKAEMIA
  7. FLUDARABINE [Suspect]
     Active Substance: FLUDARABINE PHOSPHATE
     Indication: ALLOGENIC STEM CELL TRANSPLANTATION
  8. ANTITHYMOCYTE IMMUNOGLOBULIN [Suspect]
     Active Substance: THYMOCYTE IMMUNE GLOBULIN NOS
     Indication: ALLOGENIC STEM CELL TRANSPLANTATION
  9. THIOTEPA. [Suspect]
     Active Substance: THIOTEPA
     Indication: ALLOGENIC STEM CELL TRANSPLANTATION
  10. BUSULFAN. [Suspect]
     Active Substance: BUSULFAN
     Indication: CHRONIC MYELOID LEUKAEMIA
  11. ANTITHYMOCYTE IMMUNOGLOBULIN [Suspect]
     Active Substance: THYMOCYTE IMMUNE GLOBULIN NOS
     Indication: CHRONIC MYELOID LEUKAEMIA
  12. THIOTEPA. [Suspect]
     Active Substance: THIOTEPA
     Indication: CHRONIC MYELOID LEUKAEMIA

REACTIONS (5)
  - Pancytopenia [Recovered/Resolved]
  - Toxoplasmosis [Recovered/Resolved]
  - Cytomegalovirus infection [Recovered/Resolved]
  - Epstein-Barr virus infection [Recovered/Resolved]
  - Herpes simplex [Recovered/Resolved]
